FAERS Safety Report 4363530-7 (Version None)
Quarter: 2004Q2

REPORT INFORMATION
  Report Type: 
  Country: None (occurrence: None)
  Receive Date: 20040517
  Receipt Date: 20040312
  Transmission Date: 20050107
  Serious: No
  Sender: FDA-Public Use
  Company Number: S04-USA-01694-01

PATIENT
  Age: 71 Year
  Sex: Female

DRUGS (9)
  1. NAMENDA [Suspect]
     Indication: DEMENTIA
     Dosage: 5 MG BID PO
     Route: 048
     Dates: start: 20040219, end: 20040225
  2. NAMENDA [Suspect]
     Indication: DEMENTIA
     Dosage: 10 MG QAM PO
     Route: 048
     Dates: start: 20040226, end: 20040303
  3. NAMENDA [Suspect]
     Indication: DEMENTIA
     Dosage: 5 MG QHS PO
     Route: 048
     Dates: start: 20040226, end: 20040303
  4. NAMENDA [Suspect]
     Indication: DEMENTIA
     Dosage: 10 MG BID PO
     Route: 048
     Dates: start: 20040304
  5. NAMENDA [Suspect]
     Indication: DEMENTIA
     Dosage: 5 MG QD PO
     Route: 048
     Dates: start: 20040212, end: 20040218
  6. ARICEPT [Concomitant]
  7. LOPRESSOR [Concomitant]
  8. MEVACOR [Concomitant]
  9. DYAZIDE [Concomitant]

REACTIONS (1)
  - DIZZINESS [None]
